FAERS Safety Report 4899736-8 (Version None)
Quarter: 2006Q1

REPORT INFORMATION
  Report Type: 
  Country: None (occurrence: None)
  Receive Date: 20060118
  Receipt Date: 20050808
  Transmission Date: 20060701
  Serious: No
  Sender: FDA-Public Use
  Company Number: 2005001562

PATIENT
  Age: 83 Year
  Sex: Female
  Weight: 55.3388 kg

DRUGS (8)
  1. TARCEVA [Suspect]
     Indication: NON-SMALL CELL LUNG CANCER
     Dosage: 100 MG (QD),ORAL
     Route: 048
     Dates: start: 20050622, end: 20050801
  2. POTASSIUM [Concomitant]
  3. HYDROCHLOROTHIAZIDE [Concomitant]
  4. FOLIC ACID [Concomitant]
  5. PLAQUENIL [Concomitant]
  6. XALATAN [Concomitant]
  7. ALPHAGAN [Concomitant]
  8. COSOPT [Concomitant]

REACTIONS (7)
  - ANOREXIA [None]
  - ARTHRALGIA [None]
  - DIARRHOEA [None]
  - RASH PUSTULAR [None]
  - SKIN EXFOLIATION [None]
  - STOMATITIS [None]
  - WEIGHT DECREASED [None]
